FAERS Safety Report 24970844 (Version 1)
Quarter: 2025Q1

REPORT INFORMATION
  Report Type: Spontaneous
  Country: NL (occurrence: NL)
  Receive Date: 20250214
  Receipt Date: 20250214
  Transmission Date: 20250408
  Serious: Yes (Other)
  Sender: ALEXION PHARMACEUTICALS
  Company Number: NL-AstraZeneca-CH-00805793AM

PATIENT

DRUGS (6)
  1. SYMBICORT [Suspect]
     Active Substance: BUDESONIDE\FORMOTEROL FUMARATE DIHYDRATE
     Dosage: 200 UNK, BID
     Route: 065
  2. DAPAGLIFLOZIN [Suspect]
     Active Substance: DAPAGLIFLOZIN
     Route: 065
  3. FUROSEMIDE [Concomitant]
     Active Substance: FUROSEMIDE
     Route: 050
  4. METOPROLOL SUCCINATE [Concomitant]
     Active Substance: METOPROLOL SUCCINATE
     Route: 065
  5. PANTOPRAZOLE SODIUM [Concomitant]
     Active Substance: PANTOPRAZOLE SODIUM
     Indication: Gastrooesophageal reflux disease
     Route: 065
  6. RIVAROXABAN [Concomitant]
     Active Substance: RIVAROXABAN
     Indication: Cardiac failure
     Route: 065

REACTIONS (9)
  - Oesophageal disorder [Unknown]
  - Gastric pH decreased [Unknown]
  - Cardiac failure [Unknown]
  - Dysphonia [Unknown]
  - Headache [Unknown]
  - Oesophageal pain [Unknown]
  - Lung disorder [Unknown]
  - Insomnia [Unknown]
  - Dyspepsia [Unknown]
